FAERS Safety Report 17704405 (Version 1)
Quarter: 2020Q2

REPORT INFORMATION
  Report Type: Report from Study
  Country: US (occurrence: US)
  Receive Date: 20200424
  Receipt Date: 20200424
  Transmission Date: 20200714
  Serious: Yes (Other)
  Sender: FDA-Public Use
  Company Number: US-ROCHE-2560684

PATIENT
  Sex: Female

DRUGS (11)
  1. ASTELIN [Concomitant]
     Active Substance: AZELASTINE HYDROCHLORIDE
  2. LIPITOR [Concomitant]
     Active Substance: ATORVASTATIN CALCIUM
  3. LEVOXYL [Concomitant]
     Active Substance: LEVOTHYROXINE SODIUM
  4. DELTASONE [Concomitant]
     Active Substance: PREDNISONE
  5. EVISTA [Concomitant]
     Active Substance: RALOXIFENE HYDROCHLORIDE
  6. SINGULAIR [Concomitant]
     Active Substance: MONTELUKAST SODIUM
  7. PRILOSEC [Concomitant]
     Active Substance: OMEPRAZOLE MAGNESIUM
  8. ACTEMRA [Suspect]
     Active Substance: TOCILIZUMAB
     Indication: TEMPORAL ARTERITIS
     Dosage: ACTPEN
     Route: 058
  9. COZAAR [Concomitant]
     Active Substance: LOSARTAN POTASSIUM
  10. ACTEMRA [Suspect]
     Active Substance: TOCILIZUMAB
     Indication: ARTERITIS
  11. CARDIZEM [DILTIAZEM HYDROCHLORIDE] [Concomitant]
     Active Substance: DILTIAZEM HYDROCHLORIDE

REACTIONS (1)
  - Hypoacusis [Unknown]
